FAERS Safety Report 10180703 (Version 1)
Quarter: 2014Q2

REPORT INFORMATION
  Report Type: Spontaneous
  Country: US (occurrence: None)
  Receive Date: 20140425
  Receipt Date: 20140425
  Transmission Date: 20141212
  Serious: Yes (Hospitalization)
  Sender: FDA-Public Use
  Company Number: 2013SGN00744

PATIENT
  Sex: Male

DRUGS (2)
  1. ADCETRIS [Suspect]
     Indication: T-CELL LYMPHOMA
  2. CARMUSTINE [Suspect]

REACTIONS (2)
  - Pneumonitis [None]
  - Off label use [None]
